FAERS Safety Report 17386363 (Version 1)
Quarter: 2020Q1

REPORT INFORMATION
  Report Type: Spontaneous
  Country: US (occurrence: US)
  Receive Date: 20200206
  Receipt Date: 20200206
  Transmission Date: 20200409
  Serious: No
  Sender: FDA-Public Use
  Company Number: US-ABBVIE-19K-163-2925495-00

PATIENT
  Age: 20 Year
  Sex: Female

DRUGS (2)
  1. HUMIRA [Suspect]
     Active Substance: ADALIMUMAB
     Route: 058
     Dates: start: 2018
  2. HUMIRA [Suspect]
     Active Substance: ADALIMUMAB
     Indication: CROHN^S DISEASE
     Route: 058
     Dates: start: 2018

REACTIONS (12)
  - Injection site vesicles [Unknown]
  - Injection site pain [Unknown]
  - Emotional distress [Unknown]
  - Drug ineffective [Not Recovered/Not Resolved]
  - Weight decreased [Unknown]
  - Injection site reaction [Unknown]
  - Incorrect dose administered [Recovered/Resolved]
  - Crohn^s disease [Unknown]
  - Device issue [Recovered/Resolved]
  - Device issue [Unknown]
  - Injection site injury [Unknown]
  - Pain [Unknown]

NARRATIVE: CASE EVENT DATE: 2019
